FAERS Safety Report 14117826 (Version 1)
Quarter: 2017Q4

REPORT INFORMATION
  Report Type: Spontaneous
  Country: PT (occurrence: PT)
  Receive Date: 20171024
  Receipt Date: 20171024
  Transmission Date: 20180321
  Serious: Yes (Other)
  Sender: FDA-Public Use
  Company Number: PT-MYLANLABS-2017M1065647

PATIENT
  Age: 1 Year
  Sex: Female
  Weight: 13 kg

DRUGS (3)
  1. BEN-U-RON [Concomitant]
     Dosage: DOSAGEM E FORMA FARMACEUTICA DESCONHECIDAS
  2. BRUFEN [Suspect]
     Active Substance: IBUPROFEN
     Indication: RHINORRHOEA
     Dosage: DOSAGEM E FORMA FARMACEUTICA DESCONHECIDAS
     Route: 048
     Dates: start: 201701
  3. FENISTIL [Concomitant]
     Active Substance: DIMETHINDENE
     Dosage: DOSAGEM E FORMA FARMACEUTICA DESCONHECIDAS

REACTIONS (7)
  - Pyrexia [Recovered/Resolved]
  - Cough [Recovered/Resolved]
  - Rash maculo-papular [Recovered/Resolved]
  - Angioedema [Recovered/Resolved]
  - Lip oedema [Recovered/Resolved]
  - Pruritus [Recovered/Resolved]
  - Diarrhoea [Recovered/Resolved]

NARRATIVE: CASE EVENT DATE: 201701
